FAERS Safety Report 7319908-2 (Version None)
Quarter: 2011Q1

REPORT INFORMATION
  Report Type: 
  Country: None (occurrence: None)
  Receive Date: 20110228
  Receipt Date: 20101130
  Transmission Date: 20110831
  Serious: No
  Sender: FDA-Public Use
  Company Number: A0896971A

PATIENT
  Age: 4 Year
  Sex: Male

DRUGS (3)
  1. CLONIDINE [Concomitant]
  2. LAMOTRIGINE [Suspect]
     Indication: BIPOLAR DISORDER
     Dosage: 25MG PER DAY
     Route: 048
     Dates: start: 20101104, end: 20101118
  3. RISPERDAL [Concomitant]

REACTIONS (1)
  - RASH [None]
